FAERS Safety Report 8472266-2 (Version None)
Quarter: 2012Q2

REPORT INFORMATION
  Report Type: 
  Country: None (occurrence: None)
  Receive Date: 20120627
  Receipt Date: 20120622
  Transmission Date: 20120825
  Serious: Yes (Hospitalization, Other)
  Sender: FDA-Public Use
  Company Number: PHEH2012US005845

PATIENT
  Sex: Male

DRUGS (5)
  1. CLOZARIL [Suspect]
     Indication: SCHIZOPHRENIA
     Dosage: 25 MG, UNK
     Route: 048
     Dates: start: 19920101
  2. CLOZARIL [Suspect]
     Dosage: 400 MG, QD
     Route: 048
  3. FANAPT [Concomitant]
     Dosage: 2 MG, UNK
  4. CLOZARIL [Suspect]
     Dosage: 100 MG, QID
     Route: 048
  5. CLOZARIL [Suspect]
     Dosage: 100 MG, QD
     Route: 048

REACTIONS (6)
  - CONSTIPATION [None]
  - OBSESSIVE-COMPULSIVE DISORDER [None]
  - CHEST DISCOMFORT [None]
  - SALIVARY HYPERSECRETION [None]
  - SUBCUTANEOUS ABSCESS [None]
  - ANTIPSYCHOTIC DRUG LEVEL INCREASED [None]
